FAERS Safety Report 8342729-9 (Version None)
Quarter: 2012Q2

REPORT INFORMATION
  Report Type: 
  Country: None (occurrence: None)
  Receive Date: 20120503
  Receipt Date: 20111025
  Transmission Date: 20120825
  Serious: Yes (Death, Other)
  Sender: FDA-Public Use
  Company Number: GB-024166

PATIENT

DRUGS (9)
  1. MELPHALAN HYDROCHLORIDE [Suspect]
     Indication: CHRONIC LYMPHOCYTIC LEUKAEMIA
  2. CYCLOPHOSPHAMIDE [Suspect]
     Indication: CHRONIC LYMPHOCYTIC LEUKAEMIA
  3. CYTARABINE [Suspect]
     Indication: CHRONIC LYMPHOCYTIC LEUKAEMIA
  4. CARMUSTINE [Suspect]
     Indication: CHRONIC LYMPHOCYTIC LEUKAEMIA
  5. FLUDARABINE PHOSPHATE [Suspect]
     Indication: CHRONIC LYMPHOCYTIC LEUKAEMIA
  6. (RITUXIMAB) [Suspect]
     Indication: CHRONIC LYMPHOCYTIC LEUKAEMIA
  7. PREDNISOLONE [Suspect]
     Indication: CHRONIC LYMPHOCYTIC LEUKAEMIA
  8. ETOPOSIDE [Suspect]
     Indication: CHRONIC LYMPHOCYTIC LEUKAEMIA
  9. (CHLORAMBUCIL) [Suspect]
     Indication: CHRONIC LYMPHOCYTIC LEUKAEMIA

REACTIONS (8)
  - RESPIRATORY DISORDER [None]
  - LUNG NEOPLASM [None]
  - BRONCHOPULMONARY ASPERGILLOSIS [None]
  - MALIGNANT LYMPHOMA UNCLASSIFIABLE HIGH GRADE [None]
  - NEUTROPENIA [None]
  - IMMUNOSUPPRESSION [None]
  - PNEUMONIA FUNGAL [None]
  - CHRONIC LYMPHOCYTIC LEUKAEMIA TRANSFORMATION [None]
